FAERS Safety Report 9496803 (Version 2)
Quarter: 2013Q3

REPORT INFORMATION
  Report Type: Spontaneous
  Country: GB (occurrence: GB)
  Receive Date: 20130904
  Receipt Date: 20130904
  Transmission Date: 20140515
  Serious: Yes (Death)
  Sender: FDA-Public Use
  Company Number: GB-UCBSA-096355

PATIENT
  Age: 62 Year
  Sex: Male

DRUGS (3)
  1. CIMZIA [Suspect]
     Indication: RHEUMATOID ARTHRITIS
     Route: 058
     Dates: start: 20110612, end: 20120924
  2. SULFASALAZINE [Concomitant]
     Dosage: DOSE: 2000 MG
  3. HYDROXYCHLOROQUINE [Concomitant]
     Dosage: NUMBER OF DOSES RECEIVED : 32
     Route: 058

REACTIONS (1)
  - Pancreatic carcinoma [Fatal]
